FAERS Safety Report 9017014 (Version 1)
Quarter: 2013Q1

REPORT INFORMATION
  Report Type: Spontaneous
  Country: US (occurrence: US)
  Receive Date: 20130117
  Receipt Date: 20130117
  Transmission Date: 20140127
  Serious: Yes (Death, Other)
  Sender: FDA-Public Use
  Company Number: US-COVIDIEN/TYCO HEALTHCARE/MALLINCKRODT-T201204511

PATIENT
  Age: 30 None
  Sex: Male

DRUGS (1)
  1. GABLOFEN [Suspect]
     Indication: MUSCLE SPASTICITY
     Dosage: UNK
     Route: 037

REACTIONS (5)
  - Acute respiratory failure [Fatal]
  - Drug withdrawal syndrome [Unknown]
  - Malaise [Unknown]
  - Urinary tract infection [Unknown]
  - Device failure [Unknown]
